FAERS Safety Report 22003554 (Version 4)
Quarter: 2023Q2

REPORT INFORMATION
  Report Type: Report from Study
  Country: DE (occurrence: DE)
  Receive Date: 20230217
  Receipt Date: 20230628
  Transmission Date: 20230721
  Serious: Yes (Life-Threatening, Other)
  Sender: FDA-Public Use
  Company Number: DE-AMGEN-DEUNI2022186607

PATIENT
  Age: 77 Year

DRUGS (41)
  1. CARFILZOMIB [Suspect]
     Active Substance: CARFILZOMIB
     Indication: Plasma cell myeloma refractory
     Dosage: 103 MG, OTHER D1,D2,D8,D9, D15, D16
     Route: 065
     Dates: start: 20220131, end: 20220215
  2. CARFILZOMIB [Suspect]
     Active Substance: CARFILZOMIB
     Dosage: 103 MG (D22)
     Route: 065
     Dates: start: 20220531, end: 20220531
  3. CARFILZOMIB [Suspect]
     Active Substance: CARFILZOMIB
     Dosage: 103 MG (D22)
     Route: 065
     Dates: start: 20220110, end: 20220111
  4. CARFILZOMIB [Suspect]
     Active Substance: CARFILZOMIB
     Dosage: 77 MILLIGRAM
     Route: 065
     Dates: start: 20221012, end: 20221020
  5. CARFILZOMIB [Suspect]
     Active Substance: CARFILZOMIB
     Dosage: 37 MG, OTHER D1, D2
     Route: 065
     Dates: start: 20211206, end: 20211207
  6. CARFILZOMIB [Suspect]
     Active Substance: CARFILZOMIB
     Dosage: 103 MG (D8, D9, D15)
     Route: 065
     Dates: start: 20220425, end: 20220524
  7. CARFILZOMIB [Suspect]
     Active Substance: CARFILZOMIB
     Dosage: 81 MILLIGRAM
     Route: 065
     Dates: start: 20220621, end: 20220622
  8. CARFILZOMIB [Suspect]
     Active Substance: CARFILZOMIB
     Dosage: 103 MG, OTHER D1,D2,D8,D9
     Route: 065
     Dates: start: 20220228, end: 20220313
  9. CARFILZOMIB [Suspect]
     Active Substance: CARFILZOMIB
     Dosage: 77 MG, OTHER D1
     Route: 065
     Dates: start: 20221005, end: 20221005
  10. CARFILZOMIB [Suspect]
     Active Substance: CARFILZOMIB
     Dosage: 103 MG, OTHER D1,D2
     Route: 065
     Dates: start: 20220328, end: 20220329
  11. DEXAMETHASONE [Suspect]
     Active Substance: DEXAMETHASONE
     Indication: Plasma cell myeloma refractory
     Dosage: 20 MG, OTHER D1,D2
     Route: 065
     Dates: start: 20211206, end: 20211207
  12. DEXAMETHASONE [Suspect]
     Active Substance: DEXAMETHASONE
     Dosage: 10 MG (D22, D23)
     Route: 065
     Dates: start: 20220531, end: 20220601
  13. DEXAMETHASONE [Suspect]
     Active Substance: DEXAMETHASONE
     Dosage: 10 MG, OTHER D1,D2,D8,D9
     Route: 065
     Dates: start: 20220228, end: 20220313
  14. DEXAMETHASONE [Suspect]
     Active Substance: DEXAMETHASONE
     Dosage: 10 MG, OTHER D1
     Route: 065
     Dates: start: 20221005, end: 20221005
  15. DEXAMETHASONE [Suspect]
     Active Substance: DEXAMETHASONE
     Dosage: 10 MG, OTHER D1, D2
     Route: 065
     Dates: start: 20220621, end: 20220622
  16. DEXAMETHASONE [Suspect]
     Active Substance: DEXAMETHASONE
     Dosage: 10 MG, OTHER D1, D2, D8, D9, D15, D16, D22, D23
     Route: 065
     Dates: start: 20220131, end: 20220222
  17. DEXAMETHASONE [Suspect]
     Active Substance: DEXAMETHASONE
     Dosage: 10 MG, OTHER D8, D9, D15, D16
     Route: 065
     Dates: start: 20221012, end: 20221020
  18. DEXAMETHASONE [Suspect]
     Active Substance: DEXAMETHASONE
     Dosage: 10 MG (D22, D23)
     Route: 065
     Dates: start: 20220321, end: 20220322
  19. DEXAMETHASONE [Suspect]
     Active Substance: DEXAMETHASONE
     Dosage: 10 MG, OTHER D1,D2
     Route: 065
     Dates: start: 20220328, end: 20220329
  20. DEXAMETHASONE [Suspect]
     Active Substance: DEXAMETHASONE
     Dosage: 10 MG, OTHER D8, D9, D15, D16, D22, D23
     Route: 065
     Dates: start: 20220110, end: 20220125
  21. ISATUXIMAB [Suspect]
     Active Substance: ISATUXIMAB
     Indication: Plasma cell myeloma refractory
     Dosage: 800 MG, OTHER D1
     Route: 065
     Dates: start: 20220621, end: 20220621
  22. ISATUXIMAB [Suspect]
     Active Substance: ISATUXIMAB
     Dosage: 400 MG, OTHER D1
     Route: 065
     Dates: start: 20221005, end: 20221005
  23. ISATUXIMAB [Suspect]
     Active Substance: ISATUXIMAB
     Dosage: 800 MG D8, 15, 22)
     Route: 065
     Dates: start: 20220110, end: 20220124
  24. ISATUXIMAB [Suspect]
     Active Substance: ISATUXIMAB
     Dosage: 800 MG, OTHER D1, D15
     Route: 065
     Dates: start: 20220131, end: 20220214
  25. ISATUXIMAB [Suspect]
     Active Substance: ISATUXIMAB
     Dosage: 800 MG, QW
     Route: 065
     Dates: start: 20211206, end: 20211206
  26. ISATUXIMAB [Suspect]
     Active Substance: ISATUXIMAB
     Dosage: 800 MG, OTHER D1
     Route: 065
     Dates: start: 20220328, end: 20220328
  27. ISATUXIMAB [Suspect]
     Active Substance: ISATUXIMAB
     Dosage: 800 MG, OTHER D1
     Route: 065
     Dates: start: 20220228, end: 20220313
  28. EPOETIN ALFA [Concomitant]
     Active Substance: ERYTHROPOIETIN
     Indication: Anaemia
     Dosage: UNK
     Route: 065
     Dates: start: 20200717
  29. PREDNISOLONE [Concomitant]
     Active Substance: PREDNISOLONE
     Indication: Rheumatic disorder
     Dosage: UNK
     Route: 065
     Dates: start: 2018
  30. VITAMIN B12 [Concomitant]
     Active Substance: CYANOCOBALAMIN
     Indication: Vitamin B12 deficiency
     Dosage: UNK
     Route: 065
     Dates: start: 20181130
  31. CLEMASTINE [Concomitant]
     Active Substance: CLEMASTINE
     Indication: Prophylaxis
     Dosage: UNK, QCY
     Route: 065
     Dates: start: 20211206, end: 20221005
  32. ONDANSETRON [Concomitant]
     Active Substance: ONDANSETRON
     Dosage: UNK
     Route: 065
     Dates: start: 20220210
  33. CALCIUM [Concomitant]
     Active Substance: CALCIUM
     Indication: Cholecystectomy
     Dosage: UNK
     Route: 065
     Dates: start: 20221011
  34. FOLIC ACID [Concomitant]
     Active Substance: FOLIC ACID
     Indication: Rheumatic disorder
     Dosage: UNK
     Route: 065
     Dates: start: 1992
  35. LEVOTHYROXINE SODIUM [Concomitant]
     Active Substance: LEVOTHYROXINE SODIUM
     Indication: Hypothyroidism
     Dosage: UNK
     Route: 065
     Dates: start: 2017
  36. ACETAMINOPHEN [Concomitant]
     Active Substance: ACETAMINOPHEN
     Indication: Prophylaxis
     Dosage: UNK UNK, QCY
     Route: 065
     Dates: start: 20211206, end: 20221005
  37. LISINOPRIL [Concomitant]
     Active Substance: LISINOPRIL
     Indication: Hypertension
     Dosage: UNK
     Route: 065
     Dates: start: 2017
  38. METAMIZOLE [Concomitant]
     Active Substance: METAMIZOLE
     Indication: Intervertebral disc disorder
     Dosage: UNK
     Route: 065
     Dates: start: 2018
  39. METHOTREXATE [Concomitant]
     Active Substance: METHOTREXATE
     Indication: Rheumatic disorder
     Dosage: UNK
     Dates: start: 1992
  40. MONTELUKAST [Concomitant]
     Active Substance: MONTELUKAST SODIUM
     Indication: Rhinitis allergic
     Dosage: UNK
     Route: 065
     Dates: start: 20211130
  41. CHOLECALCIFEROL [Concomitant]
     Active Substance: CHOLECALCIFEROL
     Indication: Osteopenia
     Dosage: UNK
     Route: 065
     Dates: start: 20220926

REACTIONS (3)
  - Myelodysplastic syndrome [Not Recovered/Not Resolved]
  - Infusion related reaction [Recovered/Resolved]
  - Serum ferritin increased [Recovering/Resolving]

NARRATIVE: CASE EVENT DATE: 20221005
